FAERS Safety Report 18192662 (Version 4)
Quarter: 2021Q3

REPORT INFORMATION
  Report Type: Report from Study
  Country: IT (occurrence: IT)
  Receive Date: 20200825
  Receipt Date: 20210819
  Transmission Date: 20211014
  Serious: Yes (Other)
  Sender: FDA-Public Use
  Company Number: IT-ASTRAZENECA-2020SF06238

PATIENT
  Sex: Female
  Weight: 40 kg

DRUGS (3)
  1. SELUMETINIB. [Suspect]
     Active Substance: SELUMETINIB
     Indication: NEUROFIBROMATOSIS
     Dosage: BSA ADJUSTED
     Route: 048
     Dates: start: 20200617
  2. SELUMETINIB. [Suspect]
     Active Substance: SELUMETINIB
     Indication: NEUROFIBROMATOSIS
     Dosage: BSA ADJUSTED
     Route: 048
     Dates: start: 20200617
  3. AMOXICILLINE?CLAVULANATE [Concomitant]
     Route: 065
     Dates: start: 20200816

REACTIONS (3)
  - Folliculitis [Unknown]
  - Paronychia [Unknown]
  - Acne [Unknown]
